FAERS Safety Report 7275024-X (Version None)
Quarter: 2011Q1

REPORT INFORMATION
  Report Type: 
  Country: None (occurrence: None)
  Receive Date: 20110204
  Receipt Date: 20110128
  Transmission Date: 20110831
  Serious: Yes (Other)
  Sender: FDA-Public Use
  Company Number: CA-TEVA-265617USA

PATIENT
  Age: 59 Year
  Sex: Male

DRUGS (3)
  1. TRAVOPROST [Suspect]
     Route: 047
  2. LORAZEPAM [Suspect]
  3. CLONAZEPAM [Suspect]
     Indication: ANXIETY
     Dosage: 0.25 MG-1 MG EVERY DAY
     Route: 048
     Dates: start: 20101101, end: 20110101

REACTIONS (4)
  - DEAFNESS [None]
  - EXTRASYSTOLES [None]
  - BURNING SENSATION [None]
  - BLOOD PRESSURE DECREASED [None]
